FAERS Safety Report 16036241 (Version 1)
Quarter: 2019Q1

REPORT INFORMATION
  Report Type: Spontaneous
  Country: US (occurrence: US)
  Receive Date: 20190305
  Receipt Date: 20190305
  Transmission Date: 20190418
  Serious: No
  Sender: FDA-Public Use
  Company Number: US-ALLERGAN-1821497US

PATIENT
  Age: 58 Year
  Sex: Female

DRUGS (1)
  1. ESTRACE [Suspect]
     Active Substance: ESTRADIOL
     Indication: URINARY TRACT INFECTION
     Dosage: PEA SIZE AMOUNT, BI-WEEKLY
     Route: 067
     Dates: start: 20171213, end: 20180416

REACTIONS (2)
  - Alopecia [Unknown]
  - Off label use [Unknown]
